FAERS Safety Report 25323676 (Version 1)
Quarter: 2025Q2

REPORT INFORMATION
  Report Type: Spontaneous
  Country: JP (occurrence: JP)
  Receive Date: 20250516
  Receipt Date: 20250516
  Transmission Date: 20250717
  Serious: Yes (Death, Hospitalization)
  Sender: BAYER HEALTHCARE PHARMACEUTICALS INC.
  Company Number: JP-BAYER-2025A056211

PATIENT
  Age: 60 Year
  Sex: Female

DRUGS (2)
  1. STIVARGA [Suspect]
     Active Substance: REGORAFENIB MONOHYDRATE
     Indication: Colon cancer
     Dosage: DAILY DOSE 120 MG
     Route: 048
     Dates: start: 202501
  2. MIROGABALIN BESYLATE [Concomitant]
     Active Substance: MIROGABALIN BESYLATE

REACTIONS (4)
  - Hepatitis fulminant [Fatal]
  - Respiratory disorder [Fatal]
  - Jaundice [None]
  - Liver function test increased [None]

NARRATIVE: CASE EVENT DATE: 20250415
